FAERS Safety Report 17909252 (Version 1)
Quarter: 2020Q2

REPORT INFORMATION
  Report Type: Spontaneous
  Country: US (occurrence: US)
  Receive Date: 20200617
  Receipt Date: 20200617
  Transmission Date: 20200714
  Serious: No
  Sender: FDA-Public Use
  Company Number: NVSC2020US168651

PATIENT

DRUGS (1)
  1. PIQRAY [Suspect]
     Active Substance: ALPELISIB
     Indication: NEOPLASM MALIGNANT
     Dosage: UNK UNK, QD
     Route: 048

REACTIONS (2)
  - Rash [Unknown]
  - Blood glucose increased [Unknown]
